FAERS Safety Report 17097464 (Version 1)
Quarter: 2019Q4

REPORT INFORMATION
  Report Type: Spontaneous
  Country: US (occurrence: US)
  Receive Date: 20191202
  Receipt Date: 20191202
  Transmission Date: 20200122
  Serious: No
  Sender: FDA-Public Use
  Company Number: US-MYLANLABS-2019M1109546

PATIENT
  Sex: Male
  Weight: 73 kg

DRUGS (3)
  1. FENTANYL TRANSDERMAL SYSTEM [Suspect]
     Active Substance: FENTANYL
     Indication: NECK PAIN
     Dosage: 1 DOSAGE FORM, Q3D (1 PATCH EVERY 72 HRS)
     Route: 062
     Dates: start: 2002
  2. FENTANYL TRANSDERMAL SYSTEM [Suspect]
     Active Substance: FENTANYL
     Dosage: 1 DOSAGE FORM, Q3D
     Route: 062
  3. FENTANYL TRANSDERMAL SYSTEM [Suspect]
     Active Substance: FENTANYL
     Indication: BACK PAIN
     Dosage: 1 DOSAGE FORM, Q2D
     Route: 062
     Dates: start: 2003

REACTIONS (5)
  - Withdrawal syndrome [Not Recovered/Not Resolved]
  - Yawning [Not Recovered/Not Resolved]
  - Muscle twitching [Not Recovered/Not Resolved]
  - Pain [Not Recovered/Not Resolved]
  - Therapeutic product effect decreased [Not Recovered/Not Resolved]

NARRATIVE: CASE EVENT DATE: 2003
